FAERS Safety Report 20961227 (Version 5)
Quarter: 2022Q3

REPORT INFORMATION
  Report Type: Spontaneous
  Country: US (occurrence: US)
  Receive Date: 20220615
  Receipt Date: 20220803
  Transmission Date: 20221026
  Serious: No
  Sender: FDA-Public Use
  Company Number: US-BIOGEN-2022BI01131908

PATIENT
  Sex: Male

DRUGS (6)
  1. VUMERITY [Suspect]
     Active Substance: DIROXIMEL FUMARATE
     Indication: Multiple sclerosis
     Dosage: 1 CAPSULE BY MOUTH TWICE A DAY FOR 7 DAYS, THEN 2 CAPSULES BY MOUTH TWICE A DAY THEREAFTER
     Route: 050
  2. VUMERITY [Suspect]
     Active Substance: DIROXIMEL FUMARATE
     Route: 050
     Dates: start: 20220601
  3. VUMERITY [Suspect]
     Active Substance: DIROXIMEL FUMARATE
     Dosage: 2 CAPSULES BY MOUTH TWICE A DAY THEREAFTER
     Route: 050
  4. ASPIRIN ADULT [Concomitant]
     Route: 050
  5. VITAMIN D3 [Concomitant]
     Active Substance: CHOLECALCIFEROL
     Route: 050
  6. VITAMIN C [Concomitant]
     Active Substance: ASCORBIC ACID
     Route: 050

REACTIONS (3)
  - Flushing [Not Recovered/Not Resolved]
  - Accidental underdose [Recovered/Resolved]
  - Multiple sclerosis relapse [Not Recovered/Not Resolved]
